FAERS Safety Report 25890719 (Version 4)
Quarter: 2025Q4

REPORT INFORMATION
  Report Type: Report from Study
  Country: US (occurrence: US)
  Receive Date: 20251007
  Receipt Date: 20251120
  Transmission Date: 20260118
  Serious: Yes (Other)
  Sender: MALLINCKRODT
  Company Number: US-MALLINCKRODT-MNK202506231

PATIENT
  Age: 17 Month
  Sex: Male
  Weight: 8 kg

DRUGS (4)
  1. CORTICOTROPIN [Suspect]
     Active Substance: CORTICOTROPIN
     Indication: Infantile spasms
     Route: 030
     Dates: start: 20250926, end: 20251027
  2. FUROSEMIDE [Concomitant]
     Active Substance: FUROSEMIDE
     Dosage: UNKNOWN
     Dates: start: 20251010
  3. SABRIL [Concomitant]
     Active Substance: VIGABATRIN
     Dosage: UNKNOWN
     Dates: start: 2025
  4. ONFI [Concomitant]
     Active Substance: CLOBAZAM
     Dosage: UNKNOWN
     Dates: start: 2025

REACTIONS (4)
  - Tonic convulsion [Unknown]
  - Discomfort [Recovering/Resolving]
  - Injection site reaction [Unknown]
  - Absence of immediate treatment response [Unknown]

NARRATIVE: CASE EVENT DATE: 20250101
